FAERS Safety Report 9346099 (Version 3)
Quarter: 2016Q2

REPORT INFORMATION
  Report Type: Report from Study
  Country: JP (occurrence: JP)
  Receive Date: 20130613
  Receipt Date: 20160617
  Transmission Date: 20160815
  Serious: Yes (Other)
  Sender: FDA-Public Use
  Company Number: JP-BAXTER-2013BAX017296

PATIENT
  Age: 62 Year
  Sex: Male
  Weight: 70.5 kg

DRUGS (9)
  1. PROPOFOL. [Concomitant]
     Active Substance: PROPOFOL
     Indication: INDUCTION OF ANAESTHESIA
     Route: 042
     Dates: start: 20130501, end: 20130501
  2. ROCURONIUM BROMIDE. [Concomitant]
     Active Substance: ROCURONIUM BROMIDE
     Indication: MUSCLE RELAXANT THERAPY
     Route: 042
     Dates: start: 20130501, end: 20130501
  3. SUGAMMADEX SODIUM [Concomitant]
     Active Substance: SUGAMMADEX SODIUM
     Indication: ANAESTHESIA REVERSAL
     Route: 042
     Dates: start: 20130501, end: 20130501
  4. FLURBIPROFEN AXETIL [Concomitant]
     Active Substance: FLURBIPROFEN AXETIL
     Indication: ANALGESIC THERAPY
     Route: 042
     Dates: start: 20130501, end: 20130501
  5. ETILEFRINE HYDROCHLORIDE [Concomitant]
     Active Substance: ETILEFRINE HYDROCHLORIDE
     Indication: ANAESTHETIC COMPLICATION VASCULAR
     Route: 042
     Dates: start: 20130501, end: 20130501
  6. REMIFENTANIL HYDROCHLORIDE [Concomitant]
     Active Substance: REMIFENTANIL HYDROCHLORIDE
     Indication: INDUCTION OF ANAESTHESIA
     Route: 042
     Dates: start: 20130501, end: 20130501
  7. REMIFENTANIL HYDROCHLORIDE [Concomitant]
     Active Substance: REMIFENTANIL HYDROCHLORIDE
     Indication: MAINTENANCE OF ANAESTHESIA
  8. SUPRANE [Suspect]
     Active Substance: DESFLURANE
     Indication: CLAVICLE FRACTURE
     Dosage: 4-5 PERCENT
     Route: 065
     Dates: start: 20130501, end: 20130501
  9. FENTANYL. [Concomitant]
     Active Substance: FENTANYL
     Indication: ANALGESIC THERAPY
     Route: 042
     Dates: start: 20130501, end: 20130501

REACTIONS (2)
  - Laryngospasm [Recovered/Resolved]
  - Hypoventilation [Recovered/Resolved]

NARRATIVE: CASE EVENT DATE: 20130501
